FAERS Safety Report 6006656-4 (Version None)
Quarter: 2008Q4

REPORT INFORMATION
  Report Type: 
  Country: None (occurrence: None)
  Receive Date: 20081215
  Receipt Date: 20081201
  Transmission Date: 20090506
  Serious: Yes (Hospitalization, Other)
  Sender: FDA-Public Use
  Company Number: 2008AL012085

PATIENT
  Age: 36 Year
  Sex: Male

DRUGS (6)
  1. IMIPRAMINE HYDROCHLORIDE TABLETS USP, 50MG (ATLLC) [Suspect]
     Indication: DRUG USE FOR UNKNOWN INDICATION
  2. OPIATES [Concomitant]
  3. BENZODIAZEPINES [Concomitant]
  4. ZOPICLONE [Concomitant]
  5. PHENYLPROPANOLAMINE HCL [Concomitant]
  6. PHENOTHIAZINE [Concomitant]

REACTIONS (10)
  - CONFUSIONAL STATE [None]
  - DELIRIUM [None]
  - DISORIENTATION [None]
  - DRUG ABUSE [None]
  - INAPPROPRIATE SCHEDULE OF DRUG ADMINISTRATION [None]
  - PARTIAL SEIZURES [None]
  - POISONING [None]
  - SPEECH DISORDER [None]
  - STATUS EPILEPTICUS [None]
  - TREATMENT NONCOMPLIANCE [None]
